FAERS Safety Report 9353270 (Version 2)
Quarter: 2013Q3

REPORT INFORMATION
  Report Type: Spontaneous
  Country: US (occurrence: US)
  Receive Date: 20130618
  Receipt Date: 20130711
  Transmission Date: 20140515
  Serious: No
  Sender: FDA-Public Use
  Company Number: US-PFIZER INC-2013179916

PATIENT
  Age: 66 Year
  Sex: Female

DRUGS (5)
  1. SUTENT [Suspect]
     Indication: RENAL CANCER
     Dosage: 50 MG, DAILY (CYCLIC, 4 WEEKS ON THAN 2 WEEKS OFF)
     Route: 048
  2. FENOFIBRATE [Concomitant]
     Dosage: UNK
  3. BUPROPION [Concomitant]
     Dosage: UNK
  4. DOXAZOSIN [Concomitant]
     Dosage: UNK
  5. MAGNESIUM [Concomitant]
     Dosage: UNK

REACTIONS (3)
  - Palmar-plantar erythrodysaesthesia syndrome [Not Recovered/Not Resolved]
  - Hyperkeratosis [Unknown]
  - Haemorrhoids [Not Recovered/Not Resolved]
